FAERS Safety Report 10079209 (Version 1)
Quarter: 2014Q2

REPORT INFORMATION
  Report Type: Spontaneous
  Country: DE (occurrence: DE)
  Receive Date: 20140415
  Receipt Date: 20140415
  Transmission Date: 20141212
  Serious: Yes (Death, Other)
  Sender: FDA-Public Use
  Company Number: PHHY2014DE045577

PATIENT
  Sex: 0

DRUGS (9)
  1. CICLOSPORIN [Suspect]
     Indication: PROPHYLAXIS AGAINST GRAFT VERSUS HOST DISEASE
  2. CICLOSPORIN [Suspect]
     Indication: GRAFT VERSUS HOST DISEASE
  3. BUSULFAN [Concomitant]
     Indication: ACUTE MYELOID LEUKAEMIA
     Dosage: 3.3 MG/KG, QID
     Route: 042
  4. CYCLOPHOSPHAMIDE [Concomitant]
     Indication: ACUTE MYELOID LEUKAEMIA
     Dosage: 120 MG/KG, UNK
     Route: 042
  5. IDARUBICIN [Concomitant]
     Indication: CHEMOTHERAPY
     Dosage: 20 MG/M2, UNK
     Route: 042
  6. CYTOSINE ARABINOSIDE [Concomitant]
     Indication: CHEMOTHERAPY
     Dosage: 500 MG/M2, UNK
     Route: 042
  7. GRANULOCYTE COLONY-STIMULATING FACTOR NOS [Concomitant]
     Dosage: 5 UG/KG, UNK
  8. MOLGRAMOSTIM [Concomitant]
     Dosage: 60 UG/M2, UNK
  9. MERIEUX [Concomitant]
     Dosage: 2.5 MG/KG, PER DAY

REACTIONS (3)
  - Toxoplasmosis [Fatal]
  - Graft versus host disease in skin [Unknown]
  - Leukaemia recurrent [Unknown]
